FAERS Safety Report 23267291 (Version 1)
Quarter: 2023Q4

REPORT INFORMATION
  Report Type: Report from Study
  Country: CN (occurrence: CN)
  Receive Date: 20231206
  Receipt Date: 20231206
  Transmission Date: 20240110
  Serious: Yes (Hospitalization)
  Sender: FDA-Public Use
  Company Number: CN-PFIZER INC-PV202300197186

PATIENT
  Age: 58 Year
  Sex: Female

DRUGS (6)
  1. PALBOCICLIB [Suspect]
     Active Substance: PALBOCICLIB
     Indication: Breast cancer
     Dosage: 125 MG, 1X/DAY (125 MG,1 IN 1 D)
     Route: 048
     Dates: start: 20221121, end: 20221127
  2. PALBOCICLIB [Suspect]
     Active Substance: PALBOCICLIB
     Dosage: 125 MG, 1X/DAY (125 MG,1 IN 1 D, PALBOCICLIB 125MG QD FOR 21 DAYS, FOLLOWED BY 7 DAYS OFF)
     Route: 048
     Dates: start: 20221206, end: 20231110
  3. D-0502 [Suspect]
     Active Substance: D-0502
     Indication: Breast cancer
     Dosage: 100 MG, 1X/DAY(100 MG,1 IN 1 D)
     Route: 048
     Dates: start: 20221206, end: 20231110
  4. IRBESARTAN [Concomitant]
     Active Substance: IRBESARTAN
     Indication: Hypertension
     Dosage: 0.15 G, 1X/DAY (0.15 GM,1 IN 1 D)
     Route: 048
     Dates: start: 2019
  5. METOPROLOL SUCCINATE [Concomitant]
     Active Substance: METOPROLOL SUCCINATE
     Indication: Hypertension
     Dosage: 23.75 MG, 1X/DAY (23.75 MG,1 IN 1 D)
     Route: 048
     Dates: start: 2019
  6. BEZAFIBRATE [Concomitant]
     Active Substance: BEZAFIBRATE
     Indication: Hyperlipidaemia
     Dosage: 0.2 G, 1X/DAY(0.2 GM,1 IN 1 D)
     Route: 048
     Dates: start: 20230630

REACTIONS (1)
  - Acute kidney injury [Recovering/Resolving]

NARRATIVE: CASE EVENT DATE: 20231110
